FAERS Safety Report 8637463 (Version 3)
Quarter: 2013Q2

REPORT INFORMATION
  Report Type: Spontaneous
  Country: US (occurrence: None)
  Receive Date: 20120614
  Receipt Date: 20130507
  Transmission Date: 20140414
  Serious: Yes (Hospitalization, Other)
  Sender: FDA-Public Use
  Company Number: ADR-2012-01100

PATIENT
  Sex: Male

DRUGS (5)
  1. BACLOFEN [Suspect]
     Indication: MUSCLE SPASTICITY
     Dosage: SEE B5
  2. BACLOFEN [Suspect]
     Indication: SPINAL CORD INJURY
     Dosage: SEE B5
  3. BACLOFEN [Suspect]
     Indication: SPINAL CORD DISORDER
     Dosage: SEE B5
  4. ORAL TIZANIDINE [Concomitant]
  5. REQUIP AND VALIUM [Concomitant]

REACTIONS (9)
  - No therapeutic response [None]
  - Device alarm issue [None]
  - Convulsion [None]
  - Drug withdrawal syndrome [None]
  - Drug administration error [None]
  - Faecal incontinence [None]
  - Urinary incontinence [None]
  - Abasia [None]
  - Device malfunction [None]
